FAERS Safety Report 14950838 (Version 2)
Quarter: 2018Q3

REPORT INFORMATION
  Report Type: Report from Study
  Country: JP (occurrence: JP)
  Receive Date: 20180530
  Receipt Date: 20180904
  Transmission Date: 20181010
  Serious: Yes (Death)
  Sender: FDA-Public Use
  Company Number: JP-BEH-2018091104

PATIENT
  Age: 76 Year
  Sex: Male
  Weight: 60 kg

DRUGS (4)
  1. URSO [Concomitant]
     Active Substance: URSODIOL
     Dosage: UNK
     Route: 048
     Dates: end: 20180307
  2. LIVACT                             /00847901/ [Concomitant]
     Active Substance: ISOLEUCINE\LEUCINE\VALINE
     Dosage: UNK
     Route: 048
     Dates: end: 20180307
  3. LIPIODOL ULTRA?FLUIDE [Concomitant]
     Active Substance: ETHIODIZED OIL
     Indication: GASTRIC VARICES HAEMORRHAGE
     Dosage: UNK
     Route: 065
     Dates: end: 20180307
  4. BERIPLEX P/N [Suspect]
     Active Substance: COAGULATION FACTOR IX HUMAN\COAGULATION FACTOR VII HUMAN\COAGULATION FACTOR X HUMAN\PROTEIN C\PROTEIN S HUMAN\PROTHROMBIN
     Indication: HAEMORRHAGE
     Dosage: 3000 IU, UNK
     Route: 042
     Dates: start: 20180307

REACTIONS (1)
  - Drug ineffective [Fatal]
